FAERS Safety Report 9431694 (Version 1)
Quarter: 2013Q3

REPORT INFORMATION
  Report Type: Spontaneous
  Country: US (occurrence: US)
  Receive Date: 20130731
  Receipt Date: 20130731
  Transmission Date: 20140515
  Serious: No
  Sender: FDA-Public Use
  Company Number: US-BIOGENIDEC-2013BI070260

PATIENT
  Sex: Female

DRUGS (4)
  1. AVONEX [Suspect]
     Indication: MULTIPLE SCLEROSIS
     Route: 030
     Dates: start: 20080430
  2. FLEXERIL [Concomitant]
  3. DONEPEZIL [Concomitant]
  4. OXYCODONE HCI [Concomitant]

REACTIONS (3)
  - Gait disturbance [Unknown]
  - Fall [Recovered/Resolved]
  - Back pain [Unknown]
